FAERS Safety Report 23619779 (Version 1)
Quarter: 2024Q1

REPORT INFORMATION
  Report Type: Spontaneous
  Country: NO (occurrence: NO)
  Receive Date: 20240312
  Receipt Date: 20240312
  Transmission Date: 20240410
  Serious: Yes (Hospitalization)
  Sender: FDA-Public Use
  Company Number: None

PATIENT
  Age: 45 Year
  Sex: Male

DRUGS (8)
  1. PREDNISOLONE [Suspect]
     Active Substance: PREDNISOLONE
     Indication: Uveitis
     Dosage: 80 MG X 1 FOR THREE DAYS, THEN TAPERING OFF OVER TWO WEEKS.
     Route: 048
     Dates: start: 20231208, end: 20231210
  2. PREDNISOLONE [Suspect]
     Active Substance: PREDNISOLONE
     Indication: Uveitis
     Dosage: TAPERING FROM 80 MG ONCE DAILY TO NIL OVER TWO WEEKS.
     Route: 048
     Dates: start: 20231211, end: 20231221
  3. PLAVIX [Concomitant]
     Active Substance: CLOPIDOGREL BISULFATE
     Indication: Cerebrovascular accident
     Dosage: MORNING
     Route: 065
  4. LYRICA [Concomitant]
     Active Substance: PREGABALIN
     Indication: Pain
     Dosage: 1 TABLET MORNING, AFTERNOON AND EVENING
     Route: 065
  5. BISOPROLOL [Concomitant]
     Active Substance: BISOPROLOL\BISOPROLOL FUMARATE
     Indication: Hypertension
     Route: 065
  6. LOSARTAN/HYDROCHLOROTHIAZIDE KRKA [Concomitant]
     Indication: Hypertension
     Dosage: MORNING
     Route: 065
  7. ZOPICLONE [Concomitant]
     Active Substance: ZOPICLONE
     Indication: Product used for unknown indication
     Route: 065
  8. ZOLOFT [Concomitant]
     Active Substance: SERTRALINE HYDROCHLORIDE
     Indication: Product used for unknown indication
     Dosage: MORNING
     Route: 065

REACTIONS (6)
  - Night sweats [Recovering/Resolving]
  - General physical health deterioration [Recovering/Resolving]
  - Productive cough [Recovered/Resolved]
  - Pneumonia [Recovering/Resolving]
  - Abscess limb [Recovering/Resolving]
  - Pyrexia [Recovering/Resolving]

NARRATIVE: CASE EVENT DATE: 20231211
